FAERS Safety Report 8799590 (Version 1)
Quarter: 2012Q4

REPORT INFORMATION
  Report Type: Spontaneous
  Country: FR (occurrence: None)
  Receive Date: 20120914
  Receipt Date: 20120914
  Transmission Date: 20130627
  Serious: Yes (Hospitalization)
  Sender: FDA-Public Use
  Company Number: DSA_59613_2012

PATIENT
  Age: 48 Year
  Sex: Female

DRUGS (6)
  1. FLAGYL [Suspect]
     Indication: SYSTEMIC INFLAMMATORY RESPONSE SYNDROME
     Dosage: iv, df
     Route: 042
     Dates: start: 20111225, end: 20120101
  2. VANCOMYCINE [Suspect]
     Indication: STAPHYLOCOCCAL INFECTION
     Route: 042
     Dates: start: 20111229, end: 20120101
  3. ROCEPHINE [Suspect]
     Indication: SYSTEMIC INFLAMMATORY  RESPONSE SYNDROME
     Dosage: df, iv
     Route: 042
     Dates: start: 20111226, end: 20120101
  4. METOPROLOL [Concomitant]
  5. ENALAPRIL [Concomitant]
  6. XANAX [Concomitant]

REACTIONS (4)
  - Urticaria [None]
  - Pyrexia [None]
  - Spondylitis [None]
  - Colitis ulcerative [None]
